FAERS Safety Report 9217896 (Version 1)
Quarter: 2013Q2

REPORT INFORMATION
  Report Type: Spontaneous
  Country: IT (occurrence: IT)
  Receive Date: 20130408
  Receipt Date: 20130408
  Transmission Date: 20140414
  Serious: No
  Sender: FDA-Public Use
  Company Number: PHHY2013IT033914

PATIENT
  Sex: Male

DRUGS (2)
  1. TASIGNA [Suspect]
     Indication: CHRONIC MYELOID LEUKAEMIA
     Dosage: 600 MG, DAILY
     Route: 048
     Dates: start: 20120601, end: 20130326
  2. CARBAMAZEPINE [Concomitant]
     Dosage: 400 MG, UNK
     Route: 048
     Dates: start: 2002, end: 20130326

REACTIONS (1)
  - Periorbital oedema [Unknown]
